FAERS Safety Report 7719027-7 (Version None)
Quarter: 2011Q3

REPORT INFORMATION
  Report Type: 
  Country: None (occurrence: None)
  Receive Date: 20110824
  Receipt Date: 20110811
  Transmission Date: 20111222
  Serious: Yes (Other)
  Sender: FDA-Public Use
  Company Number: 7076205

PATIENT
  Age: 61 Year
  Sex: Female

DRUGS (6)
  1. BISOPROLOL FUMARATE [Suspect]
     Indication: PRODUCT USED FOR UNKNOWN INDICATION
     Dosage: 5 MG (5 MG, 1 IN 1 D), ORAL
     Route: 048
     Dates: start: 20110408
  2. FUROSEMIDE [Suspect]
     Indication: PRODUCT USED FOR UNKNOWN INDICATION
     Dosage: 80 MG (40 MG, 2 IN 1 D), ORAL
     Route: 048
     Dates: start: 20100319
  3. LEVOTHYROXINE SODIUM [Suspect]
     Indication: PRODUCT USED FOR UNKNOWN INDICATION
     Dosage: 100 MCG (100 MCG (100 MCG,  1 IN 1 D), ORAL
     Route: 048
     Dates: start: 20110325
  4. DRONEDARONE HCL [Suspect]
     Indication: PRODUCT USED FOR UNKNOWN INDICATION
     Dosage: ORAL
     Route: 048
     Dates: start: 20101108, end: 20110516
  5. DIGOXIN [Suspect]
     Indication: PRODUCT USED FOR UNKNOWN INDICATION
     Dosage: 0.25 MG (0.25 MG, 1 IN 1 D), ORAL
     Route: 048
     Dates: start: 20091113
  6. ALDACTONE [Suspect]
     Indication: PRODUCT USED FOR UNKNOWN INDICATION
     Dosage: 25 MG (25 MG, 1 IN 1 D), ORAL
     Route: 048
     Dates: start: 20100319

REACTIONS (6)
  - FATIGUE [None]
  - DRUG INTERACTION [None]
  - PALPITATIONS [None]
  - ELECTROCARDIOGRAM ST SEGMENT ABNORMAL [None]
  - TOXICITY TO VARIOUS AGENTS [None]
  - CARDIOACTIVE DRUG LEVEL INCREASED [None]
